FAERS Safety Report 9376602 (Version 2)
Quarter: 2013Q3

REPORT INFORMATION
  Report Type: Spontaneous
  Country: AU (occurrence: AU)
  Receive Date: 20130701
  Receipt Date: 20130712
  Transmission Date: 20140515
  Serious: Yes (Hospitalization, Other)
  Sender: FDA-Public Use
  Company Number: AU-AMGEN-AUSSP2013045698

PATIENT
  Age: 73 Year
  Sex: Female

DRUGS (6)
  1. PROLIA [Suspect]
     Indication: OSTEOPOROSIS POSTMENOPAUSAL
     Dosage: 60 MG, Q6MO
     Route: 058
  2. VITAMIN D                          /00107901/ [Concomitant]
     Dosage: UNK UNK, QD
  3. GASTROSTOP [Concomitant]
  4. CLOPIDOGREL [Concomitant]
  5. PANTOPRAZOL [Concomitant]
  6. THIAMINE [Concomitant]

REACTIONS (4)
  - Vomiting [Unknown]
  - Vitamin D abnormal [Unknown]
  - Blood parathyroid hormone increased [Unknown]
  - Hypocalcaemia [Recovered/Resolved]
